FAERS Safety Report 7294350-1 (Version None)
Quarter: 2011Q1

REPORT INFORMATION
  Report Type: 
  Country: None (occurrence: None)
  Receive Date: 20110215
  Receipt Date: 20110201
  Transmission Date: 20110831
  Serious: Yes (Other)
  Sender: FDA-Public Use
  Company Number: NL-AMGEN-NLDSP2011003177

PATIENT
  Age: 71 Year
  Sex: Female
  Weight: 60 kg

DRUGS (6)
  1. METHOTREXATE SODIUM [Suspect]
     Dosage: 10 MG, WEEKLY
     Dates: start: 19980101
  2. ENBREL [Suspect]
     Indication: RHEUMATOID ARTHRITIS
     Dosage: 50 MG, WEEKLY
     Dates: start: 20100816, end: 20100913
  3. PLAQUENIL [Concomitant]
     Indication: RHEUMATOID ARTHRITIS
     Dosage: 200 MG, 1X/DAY
     Dates: start: 19980101
  4. ASCAL                              /00002702/ [Concomitant]
     Dosage: 100 MG, 1X/DAY
     Dates: start: 20101027
  5. ENBREL [Suspect]
     Dosage: 50 MG, QWK
     Dates: start: 20101011
  6. FOLIC ACID [Concomitant]
     Dosage: 1 DOSE 3 TIMES PER 1 WK

REACTIONS (3)
  - UPPER RESPIRATORY TRACT INFECTION [None]
  - CONDITION AGGRAVATED [None]
  - CHRONIC OBSTRUCTIVE PULMONARY DISEASE [None]
